FAERS Safety Report 19602289 (Version 1)
Quarter: 2021Q3

REPORT INFORMATION
  Report Type: Spontaneous
  Country: ES (occurrence: ES)
  Receive Date: 20210723
  Receipt Date: 20210723
  Transmission Date: 20211014
  Serious: Yes (Life-Threatening, Hospitalization)
  Sender: FDA-Public Use
  Company Number: ES-TEVA-2021-ES-1933896

PATIENT
  Age: 46 Year
  Sex: Female

DRUGS (3)
  1. ORFIDAL 1 MG COMPRIMIDOS, 25 COMPRIMIDOS [Interacting]
     Active Substance: LORAZEPAM
     Indication: SUICIDE ATTEMPT
     Dosage: 50MG
     Route: 048
     Dates: start: 20210616, end: 20210616
  2. QUETIAPINA (1136A) [Suspect]
     Active Substance: QUETIAPINE
     Indication: SUICIDE ATTEMPT
     Dosage: 10.95GM
     Route: 048
     Dates: start: 20210616, end: 20210616
  3. LITIO CARBONATO (1071CA) [Interacting]
     Active Substance: LITHIUM CARBONATE
     Indication: SUICIDE ATTEMPT
     Dosage: 7.6GM
     Route: 048
     Dates: start: 20210616, end: 20210616

REACTIONS (2)
  - Drug interaction [Unknown]
  - Depressed level of consciousness [Recovered/Resolved]

NARRATIVE: CASE EVENT DATE: 20210616
